FAERS Safety Report 7212351-6 (Version None)
Quarter: 2011Q1

REPORT INFORMATION
  Report Type: 
  Country: None (occurrence: None)
  Receive Date: 20110106
  Receipt Date: 20101224
  Transmission Date: 20110831
  Serious: Yes (Other)
  Sender: FDA-Public Use
  Company Number: US-BRISTOL-MYERS SQUIBB COMPANY-15442155

PATIENT
  Age: 57 Year
  Sex: Male

DRUGS (1)
  1. MITOMYCIN [Suspect]
     Indication: BLADDER TRANSITIONAL CELL CARCINOMA
     Dosage: INTRAVESICAL 40MG IN 40ML FOR 7 WKS, 2 INST INTRAURETHRAL 10MG IN 10ML. DUR: MORE THAN 2 MON.
     Route: 043

REACTIONS (2)
  - EOSINOPHILIC CYSTITIS [None]
  - RASH PRURITIC [None]
